FAERS Safety Report 8315507-4 (Version None)
Quarter: 2012Q2

REPORT INFORMATION
  Report Type: 
  Country: None (occurrence: None)
  Receive Date: 20120426
  Receipt Date: 20120419
  Transmission Date: 20120825
  Serious: Yes (Hospitalization)
  Sender: FDA-Public Use
  Company Number: CH-ABBOTT-12P-151-0927418-00

PATIENT
  Age: 71 Year
  Sex: Female
  Weight: 60 kg

DRUGS (10)
  1. ACETAMINOPHEN [Concomitant]
     Indication: PRODUCT USED FOR UNKNOWN INDICATION
     Dosage: 1 PER 1 AS NECESSARY
     Route: 048
     Dates: end: 20120306
  2. TRUVADA [Suspect]
     Indication: HIV INFECTION
     Route: 048
     Dates: start: 20110801, end: 20120306
  3. MARCUMAR [Concomitant]
     Indication: PRODUCT USED FOR UNKNOWN INDICATION
     Dosage: 1 PER 1 AS NECESSARY
     Route: 048
     Dates: start: 20111001, end: 20120306
  4. DARUNAVIR [Concomitant]
     Indication: HIV INFECTION
     Route: 048
     Dates: end: 20120306
  5. HYDROCORTISONE [Concomitant]
     Indication: PRODUCT USED FOR UNKNOWN INDICATION
     Route: 048
  6. MICARDIS [Suspect]
     Indication: PRODUCT USED FOR UNKNOWN INDICATION
     Route: 048
     Dates: end: 20120306
  7. NORVIR [Suspect]
     Indication: HIV INFECTION
     Route: 048
     Dates: start: 20110801, end: 20120306
  8. ZOLPIDEM TARTRATE [Concomitant]
     Indication: PRODUCT USED FOR UNKNOWN INDICATION
     Route: 048
  9. BONIVA [Concomitant]
     Indication: PRODUCT USED FOR UNKNOWN INDICATION
     Route: 048
     Dates: end: 20120306
  10. PANTOPRAZOLE SODIUM SESQUIHYDRATE [Concomitant]
     Indication: PRODUCT USED FOR UNKNOWN INDICATION
     Route: 048

REACTIONS (14)
  - GLYCOSURIA [None]
  - ACIDOSIS HYPERCHLORAEMIC [None]
  - NAUSEA [None]
  - DIARRHOEA [None]
  - RENAL TUBULAR NECROSIS [None]
  - OLIGURIA [None]
  - HAEMODIALYSIS-INDUCED SYMPTOM [None]
  - RENAL FAILURE ACUTE [None]
  - ALBUMINURIA [None]
  - GENERAL PHYSICAL HEALTH DETERIORATION [None]
  - HYPOKALAEMIA [None]
  - HYPERKALAEMIA [None]
  - PROTEINURIA [None]
  - VOMITING [None]
